FAERS Safety Report 20451146 (Version 1)
Quarter: 2022Q1

REPORT INFORMATION
  Report Type: Report from Study
  Country: CA (occurrence: CA)
  Receive Date: 20220209
  Receipt Date: 20220209
  Transmission Date: 20220423
  Serious: Yes (Death, Other)
  Sender: FDA-Public Use
  Company Number: CA-ABBVIE-21K-028-4165184-00

PATIENT
  Age: 84 Year
  Sex: Male

DRUGS (1)
  1. LUPRON DEPOT [Suspect]
     Active Substance: LEUPROLIDE ACETATE
     Indication: Prostate cancer
     Route: 030
     Dates: start: 20200425

REACTIONS (5)
  - Pneumonia [Fatal]
  - Prostate cancer [Unknown]
  - Gait disturbance [Unknown]
  - Asthenia [Unknown]
  - Decreased activity [Unknown]

NARRATIVE: CASE EVENT DATE: 20210801
